FAERS Safety Report 8570489-5 (Version None)
Quarter: 2012Q3

REPORT INFORMATION
  Report Type: 
  Country: None (occurrence: None)
  Receive Date: 20120803
  Receipt Date: 20120522
  Transmission Date: 20120928
  Serious: Yes (Hospitalization, Other)
  Sender: FDA-Public Use
  Company Number: AU-ABBOTT-12P-008-0937075-00

PATIENT
  Sex: Male

DRUGS (3)
  1. TEVETEN [Suspect]
     Indication: BLOOD PRESSURE
     Dosage: N
  2. NORVASC [Concomitant]
     Indication: BLOOD PRESSURE
  3. PHYSIOTENS [Suspect]
     Indication: PRODUCT USED FOR UNKNOWN INDICATION
     Dosage: ^THE LOWEST DOSE^
     Dates: start: 20120301

REACTIONS (6)
  - WEIGHT DECREASED [None]
  - DIZZINESS [None]
  - SYNCOPE [None]
  - BLOOD PRESSURE DECREASED [None]
  - LOSS OF CONSCIOUSNESS [None]
  - TYPE 2 DIABETES MELLITUS [None]
